FAERS Safety Report 5133360-7 (Version None)
Quarter: 2006Q4

REPORT INFORMATION
  Report Type: 
  Country: None (occurrence: None)
  Receive Date: 20060831
  Receipt Date: 20060501
  Transmission Date: 20070319
  Serious: No
  Sender: FDA-Public Use
  Company Number: 2006-BP-04938BP

PATIENT
  Sex: Male

DRUGS (1)
  1. SPIRIVA [Suspect]
     Dosage: (18 MCG),IH

REACTIONS (3)
  - EYE SWELLING [None]
  - OEDEMA MOUTH [None]
  - SWELLING [None]
